FAERS Safety Report 12741954 (Version 1)
Quarter: 2016Q3

REPORT INFORMATION
  Report Type: Spontaneous
  Country: TR (occurrence: TR)
  Receive Date: 20160914
  Receipt Date: 20160914
  Transmission Date: 20161109
  Serious: Yes (Other)
  Sender: FDA-Public Use
  Company Number: TR-DEPOMED, INC.-TR-2016DEP011969

PATIENT
  Age: 52 Year
  Sex: Female

DRUGS (1)
  1. DICLOFENAC [Suspect]
     Active Substance: DICLOFENAC
     Indication: BACK PAIN
     Dosage: UNK
     Route: 030

REACTIONS (9)
  - Injection site abscess [Recovered/Resolved]
  - Feeling hot [Recovered/Resolved]
  - Cellulitis [Recovered/Resolved]
  - Erythema [Recovered/Resolved]
  - Pain [Recovered/Resolved]
  - Injection site discolouration [Recovered/Resolved]
  - Embolia cutis medicamentosa [Recovered/Resolved]
  - Swelling [Recovered/Resolved]
  - Skin necrosis [Recovered/Resolved]
